FAERS Safety Report 10350796 (Version 4)
Quarter: 2016Q3

REPORT INFORMATION
  Report Type: Spontaneous
  Country: US (occurrence: US)
  Receive Date: 20140730
  Receipt Date: 20160818
  Transmission Date: 20161109
  Serious: No
  Sender: FDA-Public Use
  Company Number: US-PFIZER INC-2014208711

PATIENT
  Age: 62 Year
  Sex: Male
  Weight: 90.72 kg

DRUGS (12)
  1. INLYTA [Suspect]
     Active Substance: AXITINIB
     Dosage: 4 MG, 2X/DAY (1MG TABLET 4 TABLETS BY MOUTH IN THE MORNING AND 4 TABLETS AT NIGHT)
     Route: 048
  2. INLYTA [Suspect]
     Active Substance: AXITINIB
     Indication: RENAL CANCER
     Dosage: 5 MG, 1 TABLET BY MOUTH TWICE DAILY
     Route: 048
     Dates: start: 20140716
  3. BABY ASPIRIN [Concomitant]
     Active Substance: ASPIRIN
     Indication: PROPHYLAXIS
     Dosage: 1 DF, DAILY (STARTED ABOUT 1 YEAR AGO.)
     Route: 048
  4. HUMIRA [Concomitant]
     Active Substance: ADALIMUMAB
     Indication: PSORIATIC ARTHROPATHY
     Dosage: UNK (INJECTION TWICE MONTHLY, STARTED ABOUT 2 YEARS AGO)
  5. INLYTA [Suspect]
     Active Substance: AXITINIB
     Dosage: 1 MG, UNK
  6. METOPROLOL SUCCINATE. [Concomitant]
     Active Substance: METOPROLOL SUCCINATE
     Dosage: UNK
  7. AMLODIPINE BESILATE [Concomitant]
     Active Substance: AMLODIPINE BESYLATE
     Indication: HYPERTENSION
     Dosage: 10 MG, 1X/DAY (STARTED IN NOV OR DEC2015)
     Route: 048
  8. FISH OIL [Concomitant]
     Active Substance: FISH OIL
     Indication: PROPHYLAXIS
     Dosage: 1 DF, DAILY (ONE GEL TAB, STARTED ABOUT TWO YEARS AGO)
     Route: 048
  9. METOPROLOL SUCCINATE. [Concomitant]
     Active Substance: METOPROLOL SUCCINATE
     Dosage: 50 MG, DAILY (1 TABLET)
     Route: 048
     Dates: start: 201508
  10. METOPROLOL SUCCINATE. [Concomitant]
     Active Substance: METOPROLOL SUCCINATE
     Indication: HYPERTENSION
     Dosage: 25 MG, DAILY
     Dates: start: 201506, end: 201508
  11. CENTRUM SILVER ADULTS 50+ [Concomitant]
     Active Substance: MINERALS\VITAMINS
     Indication: ROUTINE HEALTH MAINTENANCE
     Dosage: 1 DF, DAILY
     Route: 048
  12. FLAXSEED [Concomitant]
     Active Substance: FLAX SEED
     Dosage: 1 DF, DAILY (ONE GEL TAB, HAS BEEN TAKING FOR A LONG TIME, ABOUT TWO YEARS.)
     Route: 048

REACTIONS (5)
  - Dysphonia [Unknown]
  - Rash macular [Unknown]
  - Acne [Unknown]
  - Oropharyngeal pain [Recovering/Resolving]
  - Hypertension [Not Recovered/Not Resolved]

NARRATIVE: CASE EVENT DATE: 201407
